FAERS Safety Report 6875254-2 (Version None)
Quarter: 2010Q3

REPORT INFORMATION
  Report Type: 
  Country: None (occurrence: None)
  Receive Date: 20100727
  Receipt Date: 20100713
  Transmission Date: 20110219
  Serious: Yes (Hospitalization)
  Sender: FDA-Public Use
  Company Number: DE-JNJFOC-20081103583

PATIENT
  Sex: Female

DRUGS (3)
  1. DOXORUBICIN HCL [Suspect]
     Indication: UTERINE LEIOMYOSARCOMA
     Dosage: EVERY 28 DAYS OVER 6 CYCLES
     Route: 042
  2. CARBOPLATIN [Suspect]
     Indication: UTERINE LEIOMYOSARCOMA
     Dosage: EVERY 28 DAYS OVER 6 CYCLES
     Route: 065
  3. BISOPROLOL [Concomitant]
     Route: 048

REACTIONS (1)
  - DERMAL CYST [None]
